FAERS Safety Report 20958822 (Version 2)
Quarter: 2022Q3

REPORT INFORMATION
  Report Type: Spontaneous
  Country: US (occurrence: US)
  Receive Date: 20220614
  Receipt Date: 20220902
  Transmission Date: 20221026
  Serious: No
  Sender: FDA-Public Use
  Company Number: US-BRISTOL-MYERS SQUIBB COMPANY-2022-056179

PATIENT
  Age: 86 Year
  Sex: Female

DRUGS (2)
  1. POMALYST [Suspect]
     Active Substance: POMALIDOMIDE
     Indication: Plasma cell myeloma
     Route: 048
  2. POMALYST [Suspect]
     Active Substance: POMALIDOMIDE
     Dosage: FREQ:  DAILY FOR 21 DAYS THEN HOLD FOR 7 DAYS. REPEAT EVERY 28 DAYS
     Route: 048
     Dates: start: 20220317

REACTIONS (3)
  - Swelling [Unknown]
  - Limb injury [Unknown]
  - Product dose omission issue [Unknown]
